FAERS Safety Report 4566186-3 (Version None)
Quarter: 2005Q1

REPORT INFORMATION
  Report Type: 
  Country: None (occurrence: None)
  Receive Date: 20050201
  Receipt Date: 20050120
  Transmission Date: 20050727
  Serious: Yes (Death, Hospitalization)
  Sender: FDA-Public Use
  Company Number: US-JNJFOC-20031005554

PATIENT
  Sex: Female
  Weight: 48.08 kg

DRUGS (33)
  1. REMICADE [Suspect]
     Route: 042
  2. REMICADE [Suspect]
     Route: 042
  3. REMICADE [Suspect]
     Route: 042
  4. REMICADE [Suspect]
     Route: 042
  5. REMICADE [Suspect]
     Route: 042
  6. REMICADE [Suspect]
     Route: 042
  7. REMICADE [Suspect]
     Route: 042
  8. REMICADE [Suspect]
     Route: 042
  9. REMICADE [Suspect]
     Route: 042
  10. REMICADE [Suspect]
     Route: 042
  11. REMICADE [Suspect]
     Route: 042
  12. REMICADE [Suspect]
     Route: 042
  13. REMICADE [Suspect]
     Route: 042
  14. REMICADE [Suspect]
     Route: 042
  15. REMICADE [Suspect]
     Route: 042
  16. REMICADE [Suspect]
     Route: 042
  17. REMICADE [Suspect]
     Route: 042
  18. REMICADE [Suspect]
     Indication: RHEUMATOID ARTHRITIS
     Route: 042
  19. BEXTRA [Concomitant]
     Indication: ARTHRITIS
  20. METHOTREXATE [Concomitant]
     Indication: RHEUMATOID ARTHRITIS
  21. FOSAMAX [Concomitant]
     Indication: OSTEOPOROSIS
  22. PREDNISONE [Concomitant]
     Indication: RHEUMATOID ARTHRITIS
  23. COMBIVENT [Concomitant]
  24. COMBIVENT [Concomitant]
  25. ATIVAN [Concomitant]
     Indication: DEPRESSION
  26. MODURETIC 5-50 [Concomitant]
  27. MODURETIC 5-50 [Concomitant]
     Indication: HYPERTENSION
  28. LEXAPRO [Concomitant]
     Indication: DEPRESSION
  29. EFFEXOR [Concomitant]
  30. PAXIL [Concomitant]
  31. CALCIUM WITH VITAMIN D [Concomitant]
  32. CALCIUM WITH VITAMIN D [Concomitant]
  33. CALCIUM WITH VITAMIN D [Concomitant]

REACTIONS (4)
  - EMPHYSEMATOUS BULLA [None]
  - PNEUMONIA [None]
  - PRODUCTIVE COUGH [None]
  - SMALL CELL LUNG CANCER STAGE UNSPECIFIED [None]
